FAERS Safety Report 25165816 (Version 2)
Quarter: 2025Q2

REPORT INFORMATION
  Report Type: Spontaneous
  Country: DE (occurrence: DE)
  Receive Date: 20250407
  Receipt Date: 20250418
  Transmission Date: 20250717
  Serious: Yes (Hospitalization)
  Sender: ALEXION PHARMACEUTICALS
  Company Number: DE-002147023-NVSC2025DE045553

PATIENT
  Age: 61 Year
  Weight: 60 kg

DRUGS (10)
  1. FULVESTRANT [Suspect]
     Active Substance: FULVESTRANT
     Indication: Breast cancer
  2. FULVESTRANT [Suspect]
     Active Substance: FULVESTRANT
  3. PALBOCICLIB [Suspect]
     Active Substance: PALBOCICLIB
     Indication: Breast cancer
     Dosage: 125 MG, QD (FROM DAY 1 TO DAY 21 EVERY 28 DAY CYCLE)
  4. LETROZOLE [Suspect]
     Active Substance: LETROZOLE
     Indication: Breast cancer
     Dosage: 2.5 MG, QD
  5. MCP [Concomitant]
     Active Substance: METOCLOPRAMIDE HYDROCHLORIDE
     Indication: Prophylaxis
  6. PANTOPRAZOLE [Concomitant]
     Active Substance: PANTOPRAZOLE
     Indication: Prophylaxis
  7. QUETIAPINE [Concomitant]
     Active Substance: QUETIAPINE
     Indication: Prophylaxis
  8. BISOPROLOL [Concomitant]
     Active Substance: BISOPROLOL
     Indication: Prophylaxis
  9. FLUTICASONE FUROATE\UMECLIDINIUM BROMIDE\VILANTEROL TRIFENATATE [Concomitant]
     Active Substance: FLUTICASONE FUROATE\UMECLIDINIUM BROMIDE\VILANTEROL TRIFENATATE
     Indication: Non-small cell lung cancer
  10. BEROTEC [Concomitant]
     Active Substance: FENOTEROL HYDROBROMIDE
     Indication: Non-small cell lung cancer

REACTIONS (2)
  - Ileus [Recovering/Resolving]
  - Abdominal pain [Recovering/Resolving]
